FAERS Safety Report 8848069 (Version 1)
Quarter: 2012Q4

REPORT INFORMATION
  Report Type: 
  Country: US (occurrence: US)
  Receive Date: 20121018
  Receipt Date: 20121018
  Transmission Date: 20130627
  Serious: Yes (Other)
  Sender: FDA-Public Use
  Company Number: US-ROCHE-1139681

PATIENT
  Sex: Female
  Weight: 48.1 kg

DRUGS (1)
  1. PROTROPIN [Suspect]
     Indication: BONE DEVELOPMENT ABNORMAL
     Route: 065

REACTIONS (2)
  - Cartilage injury [Unknown]
  - Hirsutism [Unknown]
